FAERS Safety Report 4320497-5 (Version None)
Quarter: 2004Q1

REPORT INFORMATION
  Report Type: 
  Country: None (occurrence: None)
  Receive Date: 20040319
  Receipt Date: 20040319
  Transmission Date: 20041129
  Serious: Yes (Disabling)
  Sender: FDA-Public Use
  Company Number: None

PATIENT
  Sex: Female
  Weight: 53.978 kg

DRUGS (2)
  1. EFFEXOR XR [Suspect]
     Indication: HOT FLUSH
     Dosage: 1 TWICE DAIL ORAL
     Route: 048
     Dates: start: 20030208, end: 20040125
  2. ADVAIR DISKUS 100/50 [Concomitant]

REACTIONS (14)
  - CONFUSIONAL STATE [None]
  - CONVERSION DISORDER [None]
  - COORDINATION ABNORMAL [None]
  - DIARRHOEA [None]
  - DRUG WITHDRAWAL SYNDROME [None]
  - EMOTIONAL DISORDER [None]
  - GASTROOESOPHAGEAL REFLUX DISEASE [None]
  - NAUSEA [None]
  - PALPITATIONS [None]
  - SLEEP APNOEA SYNDROME [None]
  - THINKING ABNORMAL [None]
  - THIRST [None]
  - VISION BLURRED [None]
  - WEIGHT INCREASED [None]
